FAERS Safety Report 6702530-6 (Version None)
Quarter: 2010Q2

REPORT INFORMATION
  Report Type: 
  Country: None (occurrence: None)
  Receive Date: 20100429
  Receipt Date: 20100419
  Transmission Date: 20101027
  Serious: Yes (Death, Life-Threatening, Other)
  Sender: FDA-Public Use
  Company Number: CO-BAXTER-2010BH010801

PATIENT
  Sex: Female

DRUGS (3)
  1. SODIUM CHLORIDE 0.9% IN PLASTIC CONTAINER [Suspect]
     Indication: FLUID REPLACEMENT
     Route: 042
     Dates: start: 20100416, end: 20100416
  2. BUSCOPAN [Suspect]
     Indication: ABDOMINAL PAIN
     Route: 065
     Dates: start: 20100416, end: 20100416
  3. DIPYRONE [Suspect]
     Indication: DRUG USE FOR UNKNOWN INDICATION
     Route: 065
     Dates: start: 20100416, end: 20100416

REACTIONS (4)
  - ABDOMINAL PAIN [None]
  - CARDIO-RESPIRATORY ARREST [None]
  - DEATH [None]
  - HYPERSENSITIVITY [None]
